FAERS Safety Report 8453403-2 (Version None)
Quarter: 2012Q2

REPORT INFORMATION
  Report Type: 
  Country: None (occurrence: None)
  Receive Date: 20120620
  Receipt Date: 20120515
  Transmission Date: 20120825
  Serious: No
  Sender: FDA-Public Use
  Company Number: US-VERTEX PHARMACEUTICALS INC.-AE-2012-007200

PATIENT
  Sex: Female
  Weight: 82.628 kg

DRUGS (5)
  1. INCIVEK [Suspect]
     Indication: HEPATITIS C
     Route: 048
     Dates: start: 20120422, end: 20120502
  2. RIBAVIRIN [Concomitant]
     Indication: HEPATITIS C
     Route: 048
     Dates: start: 20120422, end: 20120502
  3. PEGASYS [Concomitant]
     Indication: HEPATITIS C
     Dates: start: 20120422
  4. INCIVEK [Suspect]
     Route: 048
     Dates: start: 20120508
  5. RIBAVIRIN [Concomitant]
     Route: 048
     Dates: start: 20120508

REACTIONS (7)
  - PRURITUS [None]
  - DYSGEUSIA [None]
  - VOMITING [None]
  - DIARRHOEA [None]
  - NAUSEA [None]
  - SLUGGISHNESS [None]
  - ANAL PRURITUS [None]
